FAERS Safety Report 18407479 (Version 1)
Quarter: 2020Q4

REPORT INFORMATION
  Report Type: Spontaneous
  Country: RO (occurrence: RO)
  Receive Date: 20201020
  Receipt Date: 20201020
  Transmission Date: 20210114
  Serious: Yes (Hospitalization)
  Sender: FDA-Public Use
  Company Number: RO-FRESENIUS KABI-FK202010859

PATIENT
  Age: 19 Year
  Sex: Female
  Weight: 41.7 kg

DRUGS (1)
  1. DEFEROXAMINE MESYLATE (MANUFACTURER UNKNOWN) [Suspect]
     Active Substance: DEFEROXAMINE MESYLATE
     Indication: CHELATION THERAPY
     Route: 065

REACTIONS (4)
  - Underdose [Recovering/Resolving]
  - Endocrine disorder [Recovering/Resolving]
  - Haemochromatosis [Recovering/Resolving]
  - Hepatomegaly [Recovering/Resolving]
